FAERS Safety Report 10570065 (Version 1)
Quarter: 2014Q4

REPORT INFORMATION
  Report Type: Spontaneous
  Country: US (occurrence: None)
  Receive Date: 20141106
  Receipt Date: 20141106
  Transmission Date: 20150529
  Serious: Yes (Life-Threatening, Other)
  Sender: FDA-Public Use
  Company Number: None

PATIENT
  Age: 44 Year
  Sex: Female
  Weight: 70.31 kg

DRUGS (6)
  1. PERCOCET [Concomitant]
     Active Substance: ACETAMINOPHEN\OXYCODONE HYDROCHLORIDE
  2. ROBAIOXIN [Concomitant]
  3. LEVEMERE [Concomitant]
  4. LOVENOX [Concomitant]
     Active Substance: ENOXAPARIN SODIUM
  5. XARELTO [Suspect]
     Active Substance: RIVAROXABAN
     Indication: KNEE ARTHROPLASTY
     Dosage: 10 MG, 1 TABLET A DAY FOR 14 DAYS, 1 TABLET A DAY FOR 14 DAYS, ORAL
     Route: 048
     Dates: start: 20141017, end: 20141024
  6. NOVALOG [Concomitant]

REACTIONS (3)
  - Device failure [None]
  - Blood glucose increased [None]
  - Surgical procedure repeated [None]

NARRATIVE: CASE EVENT DATE: 20141020
